FAERS Safety Report 4428378-3 (Version None)
Quarter: 2004Q3

REPORT INFORMATION
  Report Type: 
  Country: None (occurrence: None)
  Receive Date: 20040818
  Receipt Date: 20040806
  Transmission Date: 20050211
  Serious: Yes (Other)
  Sender: FDA-Public Use
  Company Number: 200412575JP

PATIENT
  Age: 37 Year
  Sex: Male
  Weight: 67 kg

DRUGS (11)
  1. ALLEGRA [Suspect]
     Indication: DERMATITIS ATOPIC
     Dates: start: 20040618, end: 20040803
  2. FULMETA [Concomitant]
     Dates: start: 20040618, end: 20040803
  3. HIRUDOID [Concomitant]
     Dates: start: 20040618, end: 20040803
  4. RINDERON-V [Concomitant]
     Dates: start: 20040618, end: 20040803
  5. CORTES [Concomitant]
     Dates: start: 20040618, end: 20040803
  6. VASELINE [Concomitant]
     Dates: start: 20040618, end: 20040803
  7. CLARITH [Concomitant]
     Route: 048
     Dates: start: 20040412, end: 20040617
  8. MUCODYNE [Concomitant]
     Route: 048
     Dates: start: 20040412, end: 20040617
  9. AZELASTINE HCL [Concomitant]
     Route: 048
     Dates: start: 20040412, end: 20040617
  10. BECONASE [Concomitant]
     Route: 045
     Dates: start: 20040412, end: 20040617
  11. RINDERON A [Concomitant]
     Dates: start: 20040412, end: 20040617

REACTIONS (4)
  - ASPARTATE AMINOTRANSFERASE INCREASED [None]
  - BLOOD CREATINE PHOSPHOKINASE INCREASED [None]
  - BLOOD LACTATE DEHYDROGENASE INCREASED [None]
  - MYALGIA [None]
